FAERS Safety Report 5898000-8 (Version None)
Quarter: 2008Q3

REPORT INFORMATION
  Report Type: 
  Country: None (occurrence: None)
  Receive Date: 20080917
  Receipt Date: 20071221
  Transmission Date: 20090109
  Serious: Yes (Other)
  Sender: FDA-Public Use
  Company Number: PHEH2007US15507

PATIENT
  Age: 82 Year
  Sex: Male

DRUGS (1)
  1. FEMARA [Suspect]
     Indication: BREAST CANCER
     Dosage: 2.5 MG, QD, ORAL
     Route: 048
     Dates: start: 20070705, end: 20071130

REACTIONS (2)
  - BREAST CANCER RECURRENT [None]
  - DRUG INEFFECTIVE [None]
